FAERS Safety Report 25112163 (Version 1)
Quarter: 2025Q1

REPORT INFORMATION
  Report Type: Report from Study
  Country: US (occurrence: US)
  Receive Date: 20250324
  Receipt Date: 20250324
  Transmission Date: 20250409
  Serious: Yes (Other)
  Sender: ALEXION PHARMACEUTICALS
  Company Number: US-AstraZeneca-CH-00829912A

PATIENT

DRUGS (1)
  1. BENRALIZUMAB [Suspect]
     Active Substance: BENRALIZUMAB
     Route: 065

REACTIONS (24)
  - Cardiac failure [Unknown]
  - Pulmonary arterial hypertension [Unknown]
  - Impaired gastric emptying [Unknown]
  - Catheterisation cardiac [Unknown]
  - Taste disorder [Unknown]
  - Dyspnoea [Unknown]
  - Drug effect less than expected [Unknown]
  - Fall [Unknown]
  - Tendon injury [Unknown]
  - Wound complication [Unknown]
  - Concussion [Unknown]
  - Dizziness [Unknown]
  - Ear discomfort [Unknown]
  - Headache [Unknown]
  - Swelling [Unknown]
  - Dyspnoea [Unknown]
  - Asthma [Unknown]
  - Brain fog [Unknown]
  - Abdominal pain upper [Unknown]
  - Depression [Unknown]
  - Fear of falling [Unknown]
  - Cough [Unknown]
  - Urinary incontinence [Unknown]
  - Anal incontinence [Unknown]
